FAERS Safety Report 4461597-9 (Version None)
Quarter: 2004Q3

REPORT INFORMATION
  Report Type: 
  Country: None (occurrence: None)
  Receive Date: 20040924
  Receipt Date: 20040924
  Transmission Date: 20050211
  Serious: Yes (Death, Hospitalization)
  Sender: FDA-Public Use
  Company Number: None

PATIENT
  Age: 79 Year
  Sex: Male
  Weight: 67.1324 kg

DRUGS (14)
  1. TAXOL [Suspect]
     Dosage: 260 MG IV Q3 WKS
     Route: 042
     Dates: start: 20040520
  2. TAXOL [Suspect]
     Dosage: 260 MG IV Q3 WKS
     Route: 042
     Dates: start: 20040609
  3. TAXOL [Suspect]
     Dosage: 260 MG IV Q3 WKS
     Route: 042
     Dates: start: 20040630
  4. GEMZAR [Suspect]
     Dosage: SEE IMAGE
     Route: 042
     Dates: start: 20040520
  5. GEMZAR [Suspect]
     Dosage: SEE IMAGE
     Route: 042
     Dates: start: 20040609
  6. GEMZAR [Suspect]
     Dosage: SEE IMAGE
     Route: 042
     Dates: start: 20040630
  7. GEMZAR [Suspect]
     Dosage: SEE IMAGE
     Route: 042
     Dates: start: 20040801
  8. GEMZAR [Suspect]
     Dosage: SEE IMAGE
     Route: 042
     Dates: start: 20040804
  9. GEMZAR [Suspect]
     Dosage: SEE IMAGE
     Route: 042
     Dates: start: 20040811
  10. GEMZAR [Suspect]
     Dosage: SEE IMAGE
     Route: 042
     Dates: start: 20040825
  11. CISPLATIN [Suspect]
     Dosage: 150MG IV X 2 DOSE
     Route: 042
     Dates: start: 20040804
  12. CISPLATIN [Suspect]
     Dosage: 150MG IV X 2 DOSE
     Route: 042
     Dates: start: 20040825
  13. PREDNISONE [Concomitant]
  14. NEXIUM [Concomitant]

REACTIONS (3)
  - ACUTE RESPIRATORY DISTRESS SYNDROME [None]
  - DRUG TOXICITY [None]
  - LUNG DISORDER [None]
